FAERS Safety Report 24149467 (Version 1)
Quarter: 2024Q3

REPORT INFORMATION
  Report Type: Spontaneous
  Country: US (occurrence: US)
  Receive Date: 20240730
  Receipt Date: 20240730
  Transmission Date: 20241017
  Serious: Yes (Other)
  Sender: JUBILANT
  Company Number: US-JUBILANT CADISTA PHARMACEUTICALS-2024US000909

PATIENT
  Sex: Male
  Weight: 58.957 kg

DRUGS (2)
  1. RISPERIDONE [Suspect]
     Active Substance: RISPERIDONE
     Indication: Dementia
     Dosage: 1 DOSAGE FORM, 2 TIMES PER DAY
  2. RISPERIDONE [Suspect]
     Active Substance: RISPERIDONE
     Indication: Aggression

REACTIONS (3)
  - Seizure [Unknown]
  - Somnolence [Unknown]
  - Product physical issue [Unknown]
